FAERS Safety Report 13699331 (Version 1)
Quarter: 2017Q2

REPORT INFORMATION
  Report Type: Spontaneous
  Country: US (occurrence: US)
  Receive Date: 20170628
  Receipt Date: 20170628
  Transmission Date: 20170830
  Serious: Yes (Other)
  Sender: FDA-Public Use
  Company Number: US-CELGENEUS-USA-20170609060

PATIENT
  Sex: Male

DRUGS (1)
  1. REVLIMID [Suspect]
     Active Substance: LENALIDOMIDE
     Indication: NEOPLASM
     Dosage: 15 MILLIGRAM
     Route: 048
     Dates: start: 201705

REACTIONS (3)
  - Herpes zoster [Unknown]
  - Hypersensitivity [Unknown]
  - Pruritus [Unknown]
